FAERS Safety Report 8836186 (Version 2)
Quarter: 2012Q4

REPORT INFORMATION
  Report Type: Report from Study
  Country: DE (occurrence: DE)
  Receive Date: 20121011
  Receipt Date: 20121026
  Transmission Date: 20130627
  Serious: Yes (Death)
  Sender: FDA-Public Use
  Company Number: DE-ROCHE-1143377

PATIENT
  Sex: Male

DRUGS (2)
  1. CAPECITABINE [Suspect]
     Indication: GASTRIC CANCER
     Route: 048
     Dates: start: 20101118, end: 20110114
  2. CISPLATIN [Concomitant]
     Indication: GASTRIC CANCER
     Route: 042
     Dates: start: 20101118, end: 20110111

REACTIONS (2)
  - Malignant neoplasm progression [Fatal]
  - General physical health deterioration [Fatal]
